FAERS Safety Report 15582680 (Version 1)
Quarter: 2018Q4

REPORT INFORMATION
  Report Type: Spontaneous
  Country: GB (occurrence: GB)
  Receive Date: 20181103
  Receipt Date: 20181103
  Transmission Date: 20190205
  Serious: Yes (Other)
  Sender: FDA-Public Use
  Company Number: GB-TEVA-2018-GB-971669

PATIENT
  Age: 43 Year
  Sex: Female
  Weight: 65.31 kg

DRUGS (2)
  1. COD-LIVER OIL [Concomitant]
     Active Substance: COD LIVER OIL
     Dosage: 1 DOSAGE FORMS DAILY; HAVE STOPPED TAKING SINCE ANTIBIOTICS
     Route: 065
  2. METRONIDAZOLE. [Suspect]
     Active Substance: METRONIDAZOLE
     Indication: GINGIVITIS
     Dosage: 1200 MILLIGRAM DAILY;
     Route: 048
     Dates: start: 20181001, end: 20181006

REACTIONS (6)
  - Somnolence [Not Recovered/Not Resolved]
  - Disturbance in attention [Not Recovered/Not Resolved]
  - Feeling abnormal [Not Recovered/Not Resolved]
  - Lethargy [Unknown]
  - Confusional state [Not Recovered/Not Resolved]
  - Restlessness [Unknown]

NARRATIVE: CASE EVENT DATE: 20181006
